FAERS Safety Report 9882583 (Version 3)
Quarter: 2014Q1

REPORT INFORMATION
  Report Type: Report from Study
  Country: US (occurrence: US)
  Receive Date: 20140207
  Receipt Date: 20140221
  Transmission Date: 20141002
  Serious: Yes (Death, Hospitalization)
  Sender: FDA-Public Use
  Company Number: US-ACTELION-A-NJ2014-94127

PATIENT
  Age: 74 Year
  Sex: Female

DRUGS (2)
  1. TRACLEER [Suspect]
     Indication: PULMONARY ARTERIAL HYPERTENSION
     Dosage: UNK
     Route: 048
     Dates: end: 20140124
  2. TYVASO [Concomitant]

REACTIONS (4)
  - Cardiac arrest [Fatal]
  - Cerebrovascular accident [Fatal]
  - Dyspnoea [Unknown]
  - Unresponsive to stimuli [Fatal]
